FAERS Safety Report 4617947-3 (Version None)
Quarter: 2005Q1

REPORT INFORMATION
  Report Type: 
  Country: None (occurrence: None)
  Receive Date: 20050322
  Receipt Date: 20050315
  Transmission Date: 20050727
  Serious: Yes (Other)
  Sender: FDA-Public Use
  Company Number: 805#1#2005-00011

PATIENT
  Age: 14 Day
  Sex: Male

DRUGS (6)
  1. ALPROSTADIL [Suspect]
     Indication: HEART DISEASE CONGENITAL
     Dosage: 50 NG/KG/MIN INTRAVENOUS DRIP
     Route: 041
     Dates: start: 20050108, end: 20050109
  2. ALPROSTADIL [Suspect]
     Indication: HEART DISEASE CONGENITAL
     Dosage: 50 NG/KG/MIN INTRAVENOUS DRIP
     Route: 041
     Dates: start: 20050109, end: 20050111
  3. ALPROSTADIL [Suspect]
     Indication: HEART DISEASE CONGENITAL
     Dosage: 50 NG/KG/MIN INTRAVENOUS DRIP
     Route: 041
     Dates: start: 20050111, end: 20050114
  4. DOPAMINE HCL [Concomitant]
  5. MENATETRONE (MENATETRENONE) [Concomitant]
  6. FURSEMIDE (FUROSEMIDE) [Concomitant]

REACTIONS (5)
  - BLOOD PRESSURE SYSTOLIC INCREASED [None]
  - HEART RATE INCREASED [None]
  - NEONATAL APNOEIC ATTACK [None]
  - NEONATAL DISORDER [None]
  - RESPIRATORY RATE INCREASED [None]
